FAERS Safety Report 18275904 (Version 2)
Quarter: 2020Q3

REPORT INFORMATION
  Report Type: Spontaneous
  Country: HK (occurrence: HK)
  Receive Date: 20200916
  Receipt Date: 20200923
  Transmission Date: 20201103
  Serious: Yes (Death)
  Sender: FDA-Public Use
  Company Number: HK-ROCHE-2677763

PATIENT
  Sex: Female

DRUGS (3)
  1. CRIZOTINIB [Concomitant]
     Active Substance: CRIZOTINIB
  2. LORLATINIB [Concomitant]
     Active Substance: LORLATINIB
  3. ENTRECTINIB [Suspect]
     Active Substance: ENTRECTINIB
     Indication: NON-SMALL CELL LUNG CANCER
     Route: 065

REACTIONS (1)
  - Myocardial infarction [Fatal]
